FAERS Safety Report 4636293-5 (Version None)
Quarter: 2005Q2

REPORT INFORMATION
  Report Type: 
  Country: None (occurrence: None)
  Receive Date: 20050415
  Receipt Date: 20040702
  Transmission Date: 20051028
  Serious: No
  Sender: FDA-Public Use
  Company Number: US-BRISTOL-MYERS SQUIBB COMPANY-12632808

PATIENT
  Age: 72 Year
  Sex: Female
  Weight: 66 kg

DRUGS (3)
  1. PARAPLATIN [Suspect]
     Indication: LUNG NEOPLASM MALIGNANT
     Dosage: THERAPY STARTED THE END OF JAN-2004
     Route: 042
  2. LEVOTHYROXINE [Concomitant]
  3. WELLBUTRIN [Concomitant]

REACTIONS (1)
  - VAGINAL DISCHARGE [None]
